FAERS Safety Report 6836838-0 (Version None)
Quarter: 2010Q3

REPORT INFORMATION
  Report Type: 
  Country: None (occurrence: None)
  Receive Date: 20100713
  Receipt Date: 20070508
  Transmission Date: 20110219
  Serious: No
  Sender: FDA-Public Use
  Company Number: US-PFIZER INC-2007035914

PATIENT
  Sex: Female
  Weight: 71.818 kg

DRUGS (3)
  1. CHANTIX [Suspect]
     Indication: SMOKING CESSATION THERAPY
     Dates: start: 20070325
  2. ALL OTHER THERAPEUTIC PRODUCTS [Concomitant]
  3. CLONAZEPAM [Concomitant]

REACTIONS (4)
  - EYE PAIN [None]
  - HEAD DISCOMFORT [None]
  - HEADACHE [None]
  - PALPITATIONS [None]
